FAERS Safety Report 9785603 (Version 1)
Quarter: 2013Q4

REPORT INFORMATION
  Report Type: Spontaneous
  Country: IT (occurrence: None)
  Receive Date: 20131224
  Receipt Date: 20131224
  Transmission Date: 20140711
  Serious: Yes (Other)
  Sender: FDA-Public Use
  Company Number: 2079319

PATIENT
  Age: 35 Year
  Sex: Female

DRUGS (1)
  1. OXALIPLATIN [Suspect]
     Indication: COLON NEOPLASM
     Dosage: TOTAL (NOT OTHERWISE SPECIFIED)
     Route: 042
     Dates: start: 20131209, end: 20131209

REACTIONS (6)
  - Feeling hot [None]
  - Erythema [None]
  - Formication [None]
  - Dyspnoea [None]
  - Chest discomfort [None]
  - Flushing [None]
